FAERS Safety Report 8211093-8 (Version None)
Quarter: 2012Q1

REPORT INFORMATION
  Report Type: 
  Country: None (occurrence: None)
  Receive Date: 20120229
  Receipt Date: 20111111
  Transmission Date: 20120608
  Serious: Yes (Hospitalization)
  Sender: FDA-Public Use
  Company Number: 339397

PATIENT
  Age: 15 Year
  Sex: Female
  Weight: 67.1 kg

DRUGS (1)
  1. NOVOLIN R [Suspect]
     Indication: DIABETES MELLITUS
     Dosage: 6.7 U/HOUR, INTRAVENOUS
     Route: 042
     Dates: start: 20111109

REACTIONS (1)
  - BLOOD GLUCOSE INCREASED [None]
